FAERS Safety Report 4523306-4 (Version None)
Quarter: 2004Q4

REPORT INFORMATION
  Report Type: 
  Country: None (occurrence: None)
  Receive Date: 20041208
  Receipt Date: 20041124
  Transmission Date: 20050328
  Serious: Yes (Life-Threatening, Hospitalization)
  Sender: FDA-Public Use
  Company Number: 2004-05002

PATIENT
  Age: 72 Year
  Sex: Male
  Weight: 49.2 kg

DRUGS (5)
  1. ATENOLOL [Suspect]
     Indication: HYPERTENSION
     Dosage: 25 MG, DAILY, ORAL
     Route: 048
  2. CILOSTAZOL [Suspect]
     Dosage: 100 MG, DAILY, ORAL
     Route: 048
  3. AMLODIPINE [Concomitant]
  4. DOXAZOSIN [Concomitant]
  5. INSULIN [Concomitant]

REACTIONS (5)
  - BRADYCARDIA [None]
  - CARDIAC ARREST [None]
  - DRUG INTERACTION [None]
  - PROCEDURAL COMPLICATION [None]
  - SICK SINUS SYNDROME [None]
